FAERS Safety Report 6029836-0 (Version None)
Quarter: 2008Q4

REPORT INFORMATION
  Report Type: 
  Country: None (occurrence: None)
  Receive Date: 20081222
  Receipt Date: 20080930
  Transmission Date: 20090506
  Serious: No
  Sender: FDA-Public Use
  Company Number: US-WYE-H06196808

PATIENT
  Age: 65 Year
  Sex: Female
  Weight: 59.02 kg

DRUGS (6)
  1. PRISTIQ [Suspect]
     Indication: DEPRESSION
     Dosage: 50 MG 1X PER 1 DAY, ORAL
     Route: 048
     Dates: start: 20080909
  2. NORVASC [Concomitant]
  3. LIPITOR [Concomitant]
  4. ASPIRIN [Concomitant]
  5. VITAMIN D [Concomitant]
  6. FOLIC ACID [Concomitant]

REACTIONS (3)
  - ASTHENIA [None]
  - DRY EYE [None]
  - FATIGUE [None]
